FAERS Safety Report 6477839-4 (Version None)
Quarter: 2009Q4

REPORT INFORMATION
  Report Type: 
  Country: None (occurrence: None)
  Receive Date: 20091207
  Receipt Date: 20091125
  Transmission Date: 20100525
  Serious: Yes (Other)
  Sender: FDA-Public Use
  Company Number: US-PFIZER INC-2009305367

PATIENT
  Sex: Male

DRUGS (2)
  1. ZOLOFT [Suspect]
  2. ALCOHOL [Suspect]

REACTIONS (2)
  - ALCOHOL POISONING [None]
  - HAEMOPTYSIS [None]
